FAERS Safety Report 21526214 (Version 1)
Quarter: 2022Q4

REPORT INFORMATION
  Report Type: Spontaneous
  Country: US (occurrence: US)
  Receive Date: 20221031
  Receipt Date: 20221031
  Transmission Date: 20230112
  Serious: Yes (Hospitalization, Other)
  Sender: FDA-Public Use
  Company Number: US-GLENMARK PHARMACEUTICALS-2022GMK076053

PATIENT
  Age: 2 Day
  Sex: Male

DRUGS (2)
  1. LIDOCAINE [Suspect]
     Active Substance: LIDOCAINE
     Indication: Product used for unknown indication
     Dosage: UNK
     Route: 065
  2. ONDANSETRON [Suspect]
     Active Substance: ONDANSETRON
     Indication: Product used for unknown indication
     Dosage: 2 MILLIGRAM
     Route: 030

REACTIONS (5)
  - Penile oedema [Recovering/Resolving]
  - Electrocardiogram QT prolonged [Recovering/Resolving]
  - Wrong product administered [Unknown]
  - Respiratory rate increased [Unknown]
  - Heart rate increased [Recovering/Resolving]
